FAERS Safety Report 4362474-4 (Version None)
Quarter: 2004Q2

REPORT INFORMATION
  Report Type: 
  Country: None (occurrence: None)
  Receive Date: 20040521
  Receipt Date: 20040519
  Transmission Date: 20050107
  Serious: Yes (Hospitalization)
  Sender: FDA-Public Use
  Company Number: FR-GLAXOSMITHKLINE-B0333221A

PATIENT
  Age: 76 Year
  Sex: Female

DRUGS (11)
  1. AUGMENTIN [Suspect]
     Indication: INFECTION
     Dosage: 1G THREE TIMES PER DAY
     Route: 042
     Dates: start: 20040329, end: 20040329
  2. ALLOPURINOL [Suspect]
     Dosage: 300MG SINGLE DOSE
     Route: 048
     Dates: start: 20040328
  3. CIPROFLOXACIN [Suspect]
     Indication: INFECTION
     Dosage: 200MG TWICE PER DAY
     Route: 042
     Dates: start: 20040329, end: 20040329
  4. BURINEX [Concomitant]
     Route: 048
  5. AMLODIPINE [Concomitant]
     Route: 048
  6. SIMVASTATIN [Concomitant]
     Route: 048
  7. MEDIATOR [Concomitant]
     Route: 048
  8. DIASTABOL [Concomitant]
     Route: 048
  9. DIFRAREL [Concomitant]
     Route: 048
  10. OGAST [Concomitant]
     Route: 048
  11. LACTULOSE MIXTURE [Concomitant]
     Route: 048

REACTIONS (12)
  - ALANINE AMINOTRANSFERASE INCREASED [None]
  - ASPARTATE AMINOTRANSFERASE INCREASED [None]
  - BLOOD ALKALINE PHOSPHATASE INCREASED [None]
  - BLOOD BILIRUBIN INCREASED [None]
  - BLOOD LACTATE DEHYDROGENASE INCREASED [None]
  - DIABETES MELLITUS INADEQUATE CONTROL [None]
  - EOSINOPHILIA [None]
  - HYPERSENSITIVITY [None]
  - MYALGIA [None]
  - PYREXIA [None]
  - RASH MACULO-PAPULAR [None]
  - TRANSAMINASES INCREASED [None]
